FAERS Safety Report 9834938 (Version 1)
Quarter: 2014Q1

REPORT INFORMATION
  Report Type: Spontaneous
  Country: DK (occurrence: DK)
  Receive Date: 20140122
  Receipt Date: 20140122
  Transmission Date: 20141002
  Serious: Yes (Life-Threatening, Hospitalization, Disabling)
  Sender: FDA-Public Use
  Company Number: DK-GLAXOSMITHKLINE-B0962412A

PATIENT
  Sex: Male

DRUGS (1)
  1. ATRIANCE [Suspect]
     Indication: T-CELL TYPE ACUTE LEUKAEMIA
     Route: 042
     Dates: start: 20130930, end: 20131009

REACTIONS (8)
  - Neurotoxicity [Not Recovered/Not Resolved]
  - Toxic neuropathy [Not Recovered/Not Resolved]
  - Encephalopathy [Not Recovered/Not Resolved]
  - Paralysis [Not Recovered/Not Resolved]
  - Altered state of consciousness [Not Recovered/Not Resolved]
  - Endotracheal intubation [Not Recovered/Not Resolved]
  - Paresis [Not Recovered/Not Resolved]
  - Neuralgia [Not Recovered/Not Resolved]
